FAERS Safety Report 19508550 (Version 1)
Quarter: 2021Q3

REPORT INFORMATION
  Report Type: Spontaneous
  Country: US (occurrence: US)
  Receive Date: 20210709
  Receipt Date: 20210709
  Transmission Date: 20211014
  Serious: No
  Sender: FDA-Public Use
  Company Number: US-009507513-2107USA000346

PATIENT
  Age: 46 Year
  Sex: Female

DRUGS (2)
  1. CUBICIN [Suspect]
     Active Substance: DAPTOMYCIN
     Indication: ENDOCARDITIS
  2. CEFTAROLINE [Suspect]
     Active Substance: CEFTAROLINE
     Indication: ENDOCARDITIS

REACTIONS (1)
  - Product use in unapproved indication [Unknown]
